FAERS Safety Report 8175103-9 (Version None)
Quarter: 2012Q1

REPORT INFORMATION
  Report Type: 
  Country: None (occurrence: None)
  Receive Date: 20120229
  Receipt Date: 20120223
  Transmission Date: 20120608
  Serious: Yes (Hospitalization)
  Sender: FDA-Public Use
  Company Number: PHEH2011US010492

PATIENT
  Sex: Female
  Weight: 175 kg

DRUGS (3)
  1. VITAMIN D [Concomitant]
  2. RECLAST [Suspect]
     Indication: OSTEOPOROSIS
     Dosage: 5 MG (YEARLY)
     Route: 042
     Dates: start: 20110303, end: 20110303
  3. CALCIUM [Concomitant]

REACTIONS (7)
  - VISION BLURRED [None]
  - VENTRICULAR EXTRASYSTOLES [None]
  - MYALGIA [None]
  - BLINDNESS [None]
  - INFLUENZA LIKE ILLNESS [None]
  - PAIN [None]
  - ARTHRALGIA [None]
